FAERS Safety Report 23349704 (Version 1)
Quarter: 2023Q4

REPORT INFORMATION
  Report Type: Spontaneous
  Country: PT (occurrence: PT)
  Receive Date: 20231229
  Receipt Date: 20231229
  Transmission Date: 20240110
  Serious: Yes (Other)
  Sender: FDA-Public Use
  Company Number: PT-MYLANLABS-2023M1134390

PATIENT
  Age: 77 Year
  Sex: Female
  Weight: 50 kg

DRUGS (6)
  1. MONTELUKAST SODIUM [Suspect]
     Active Substance: MONTELUKAST SODIUM
     Indication: Cough
     Dosage: 10 MILLIGRAM, QD
  2. MONTELUKAST SODIUM [Suspect]
     Active Substance: MONTELUKAST SODIUM
     Indication: Rhinitis
  3. BUDESONIDE [Suspect]
     Active Substance: BUDESONIDE
     Indication: Cough
     Dosage: 200 MICROGRAM, BID
  4. BUDESONIDE [Suspect]
     Active Substance: BUDESONIDE
     Indication: Rhinitis
  5. FLUTICASONE [Concomitant]
     Active Substance: FLUTICASONE
     Indication: Rhinitis
     Dosage: UNK, BID
  6. FLUTICASONE [Concomitant]
     Active Substance: FLUTICASONE
     Indication: Cough

REACTIONS (3)
  - Pneumocystis jirovecii infection [Unknown]
  - Off label use [Unknown]
  - Therapy non-responder [Unknown]
